FAERS Safety Report 7991629-2 (Version None)
Quarter: 2011Q4

REPORT INFORMATION
  Report Type: 
  Country: None (occurrence: None)
  Receive Date: 20111219
  Receipt Date: 20111208
  Transmission Date: 20120403
  Serious: Yes (Hospitalization, Other)
  Sender: FDA-Public Use
  Company Number: PHHY2011US107154

PATIENT
  Age: 34 Year
  Sex: Female

DRUGS (3)
  1. VALGANCICLOVIR [Suspect]
  2. CEFTRIAXONE [Suspect]
     Route: 042
  3. VANCOMYCIN HYCHLORIDE [Suspect]
     Route: 042

REACTIONS (13)
  - TRANSAMINASES INCREASED [None]
  - LEUKOCYTOSIS [None]
  - DUODENAL ULCER [None]
  - GASTROOESOPHAGITIS [None]
  - CYTOMEGALOVIRUS INFECTION [None]
  - HYPOTENSION [None]
  - ABDOMINAL PAIN UPPER [None]
  - CHILLS [None]
  - ODYNOPHAGIA [None]
  - EOSINOPHILIA [None]
  - DRUG RASH WITH EOSINOPHILIA AND SYSTEMIC SYMPTOMS [None]
  - PYREXIA [None]
  - RASH MACULO-PAPULAR [None]
